FAERS Safety Report 23400135 (Version 2)
Quarter: 2024Q1

REPORT INFORMATION
  Report Type: Spontaneous
  Country: US (occurrence: US)
  Receive Date: 20240114
  Receipt Date: 20240307
  Transmission Date: 20240410
  Serious: No
  Sender: FDA-Public Use
  Company Number: US-BIOGEN-2023BI01242115

PATIENT
  Sex: Male

DRUGS (3)
  1. SKYCLARYS [Suspect]
     Active Substance: OMAVELOXOLONE
     Indication: Friedreich^s ataxia
     Route: 050
     Dates: start: 20230703
  2. SKYCLARYS [Suspect]
     Active Substance: OMAVELOXOLONE
     Route: 050
     Dates: start: 20230703
  3. IODINE [Suspect]
     Active Substance: IODINE
     Indication: Product used for unknown indication
     Route: 050

REACTIONS (7)
  - Joint swelling [Unknown]
  - Gastroenteritis viral [Unknown]
  - Urine odour abnormal [Unknown]
  - Product use issue [Unknown]
  - Product dose omission issue [Unknown]
  - Fluid retention [Unknown]
  - Iodine allergy [Unknown]

NARRATIVE: CASE EVENT DATE: 20230101
